FAERS Safety Report 23301436 (Version 2)
Quarter: 2024Q1

REPORT INFORMATION
  Report Type: Spontaneous
  Country: DE (occurrence: DE)
  Receive Date: 20231215
  Receipt Date: 20240103
  Transmission Date: 20240409
  Serious: Yes (Other)
  Sender: FDA-Public Use
  Company Number: DE-EXELTIS PHARMACEUTICAL HOLDING, S.L.-2312DE08602

PATIENT
  Age: 33 Year
  Sex: Female

DRUGS (1)
  1. ETHINYL ESTRADIOL\ETONOGESTREL [Suspect]
     Active Substance: ETHINYL ESTRADIOL\ETONOGESTREL
     Indication: Contraception
     Dosage: 1 DOSAGE FORM, MONTHLY
     Dates: start: 202103, end: 202311

REACTIONS (3)
  - Pregnancy on contraceptive [Recovered/Resolved]
  - Drug ineffective [Unknown]
  - Abortion spontaneous complete [Recovered/Resolved]

NARRATIVE: CASE EVENT DATE: 20231204
